FAERS Safety Report 16932144 (Version 3)
Quarter: 2019Q4

REPORT INFORMATION
  Report Type: Report from Study
  Country: DE (occurrence: DE)
  Receive Date: 20191017
  Receipt Date: 20191025
  Transmission Date: 20200122
  Serious: Yes (Death, Hospitalization, Other)
  Sender: FDA-Public Use
  Company Number: PHHY2018DE050704

PATIENT
  Sex: Female
  Weight: 59.8 kg

DRUGS (2)
  1. KISQALI [Suspect]
     Active Substance: RIBOCICLIB
     Indication: BREAST CANCER METASTATIC
     Dosage: 600 MG, QD (SCHEMA, 21 DAYS INTAKE THAN 7 DAYS PAUSE)
     Route: 048
     Dates: start: 20180423, end: 20190812
  2. LETROZOL HEUMANN [Suspect]
     Active Substance: LETROZOLE
     Indication: BREAST CANCER METASTATIC
     Dosage: 2.5 MG, QD (1-0-0)
     Route: 048
     Dates: start: 20180423, end: 20190812

REACTIONS (9)
  - Haemoglobin decreased [Recovered/Resolved]
  - Ascites [Fatal]
  - Abdominal pain [Fatal]
  - Urinary tract infection [Recovered/Resolved]
  - Diarrhoea [Not Recovered/Not Resolved]
  - Malignant neoplasm progression [Fatal]
  - Insomnia [Not Recovered/Not Resolved]
  - Breast cancer metastatic [Fatal]
  - Haemoglobin decreased [Recovered/Resolved]

NARRATIVE: CASE EVENT DATE: 20180710
